FAERS Safety Report 13499752 (Version 1)
Quarter: 2017Q2

REPORT INFORMATION
  Report Type: Spontaneous
  Country: US (occurrence: US)
  Receive Date: 20170501
  Receipt Date: 20170501
  Transmission Date: 20170830
  Serious: Yes (Hospitalization)
  Sender: FDA-Public Use
  Company Number: US-PRAGMA PHARMACEUTICALS, LLC-2017PRG00043

PATIENT
  Age: 55 Year
  Sex: Female
  Weight: 65.13 kg

DRUGS (24)
  1. ZANAFLEX [Concomitant]
     Active Substance: TIZANIDINE HYDROCHLORIDE
     Indication: BACK PAIN
     Dosage: UNK
     Dates: start: 2006
  2. AMBIEN [Concomitant]
     Active Substance: ZOLPIDEM TARTRATE
     Indication: SLEEP DISORDER
     Dosage: UNK
     Dates: start: 200707
  3. MS CONTIN [Concomitant]
     Active Substance: MORPHINE SULFATE
     Indication: BACK PAIN
     Dosage: UNK
     Dates: start: 20161020
  4. KEFLEX [Suspect]
     Active Substance: CEPHALEXIN
     Indication: CELLULITIS
     Dosage: UNK
     Dates: start: 2017
  5. ASPIRIN. [Concomitant]
     Active Substance: ASPIRIN
     Indication: THROMBOSIS PROPHYLAXIS
     Dosage: UNK
     Dates: start: 20160321
  6. NEURONTIN [Concomitant]
     Active Substance: GABAPENTIN
     Dosage: UNK
     Dates: start: 20110203
  7. AMLODIPINE BESYLATE. [Concomitant]
     Active Substance: AMLODIPINE BESYLATE
     Indication: HYPERTENSION
     Dosage: UNK
     Dates: start: 20100607
  8. ESTRADIOL. [Concomitant]
     Active Substance: ESTRADIOL
     Indication: HORMONE REPLACEMENT THERAPY
     Dosage: UNK
     Dates: start: 20150902
  9. VALIUM [Concomitant]
     Active Substance: DIAZEPAM
     Indication: SLEEP DISORDER
     Dosage: UNK
     Dates: start: 200702
  10. SENNA-S [Concomitant]
     Active Substance: DOCUSATE SODIUM\SENNOSIDES
     Indication: CONSTIPATION PROPHYLAXIS
     Dosage: UNK
     Dates: start: 20160311
  11. CLINDAMYCIN. [Suspect]
     Active Substance: CLINDAMYCIN
     Indication: CELLULITIS
     Dosage: UNK
     Dates: start: 2017
  12. PHENERGAN [Concomitant]
     Active Substance: PROMETHAZINE HYDROCHLORIDE
     Indication: NAUSEA
     Dosage: UNK
     Dates: start: 2007
  13. NEXIUM [Concomitant]
     Active Substance: ESOMEPRAZOLE MAGNESIUM
     Indication: PROPHYLAXIS
     Dosage: UNK
     Dates: start: 200708
  14. VITAMIN D2 [Concomitant]
     Active Substance: ERGOCALCIFEROL
     Indication: VITAMIN D DEFICIENCY
     Dosage: UNK
     Dates: start: 20090303
  15. PREDNISONE. [Concomitant]
     Active Substance: PREDNISONE
     Indication: RHEUMATOID ARTHRITIS
     Dosage: UNK
     Dates: start: 20080430
  16. POTASSIUM CHLORIDE. [Concomitant]
     Active Substance: POTASSIUM CHLORIDE
     Dosage: UNK
     Dates: start: 20090610
  17. ZOFRAN [Concomitant]
     Active Substance: ONDANSETRON HYDROCHLORIDE
     Indication: NAUSEA
     Dosage: UNK
     Dates: start: 2006
  18. CALTRATE WITH D [Concomitant]
     Indication: OSTEOPENIA
     Dosage: UNK
     Dates: start: 20081030
  19. PLAQUENIL [Concomitant]
     Active Substance: HYDROXYCHLOROQUINE SULFATE
     Indication: RHEUMATOID ARTHRITIS
     Dosage: UNK
     Dates: start: 20080430
  20. FOLIC ACID. [Concomitant]
     Active Substance: FOLIC ACID
     Dosage: UNK
     Dates: start: 20100310
  21. METHOTREXATE. [Concomitant]
     Active Substance: METHOTREXATE
     Indication: RHEUMATOID ARTHRITIS
     Dosage: UNK
     Dates: start: 20100310
  22. FUROSEMIDE. [Concomitant]
     Active Substance: FUROSEMIDE
     Indication: GENERALISED OEDEMA
     Dosage: UNK
     Dates: start: 20130603
  23. ROPINIROLE. [Concomitant]
     Active Substance: ROPINIROLE
     Indication: RESTLESS LEGS SYNDROME
     Dosage: UNK
     Dates: start: 20160818
  24. SILENOR [Concomitant]
     Active Substance: DOXEPIN HYDROCHLORIDE
     Indication: SLEEP DISORDER
     Dosage: UNK
     Dates: start: 20161201

REACTIONS (2)
  - Drug ineffective [Recovered/Resolved]
  - Rash [Unknown]

NARRATIVE: CASE EVENT DATE: 2017
